FAERS Safety Report 6316619-7 (Version None)
Quarter: 2009Q3

REPORT INFORMATION
  Report Type: 
  Country: None (occurrence: None)
  Receive Date: 20090820
  Receipt Date: 20090811
  Transmission Date: 20100115
  Serious: Yes (Hospitalization)
  Sender: FDA-Public Use
  Company Number: GB-ASTRAZENECA-2009SE07211

PATIENT
  Age: 18043 Day
  Sex: Female

DRUGS (9)
  1. SEROQUEL XR [Suspect]
     Indication: BIPOLAR DISORDER
     Route: 048
     Dates: start: 20090613, end: 20090627
  2. SEROQUEL XR [Suspect]
     Route: 048
     Dates: start: 20090630, end: 20090630
  3. SEROQUEL XR [Suspect]
     Route: 048
     Dates: start: 20090701, end: 20090706
  4. CLONAZEPAM [Concomitant]
  5. LAMOTRIGINE [Concomitant]
  6. HALOPERIDOL [Concomitant]
  7. ASPIRIN [Concomitant]
  8. DOCUSATE SODIUM [Concomitant]
  9. SEMISODIUM VALPROATE [Concomitant]

REACTIONS (4)
  - CEREBROVASCULAR ACCIDENT [None]
  - CONVULSION [None]
  - EXTRAPYRAMIDAL DISORDER [None]
  - NEUROLEPTIC MALIGNANT SYNDROME [None]
